FAERS Safety Report 5298464-7 (Version None)
Quarter: 2007Q2

REPORT INFORMATION
  Report Type: 
  Country: None (occurrence: None)
  Receive Date: 20070409
  Receipt Date: 20070327
  Transmission Date: 20071010
  Serious: Yes (Hospitalization, Other)
  Sender: FDA-Public Use
  Company Number: TPA2006A02171

PATIENT
  Age: 81 Year
  Sex: Female
  Weight: 72.5755 kg

DRUGS (11)
  1. ACTOS [Suspect]
     Indication: DIABETES MELLITUS NON-INSULIN-DEPENDENT
     Dosage: SEE IMAGE
     Route: 048
  2. ACTONEL [Concomitant]
  3. NEURONTIN [Concomitant]
  4. GLUCOPHAGE [Concomitant]
  5. CELEBREX [Concomitant]
  6. LIPITOR [Concomitant]
  7. LEVOTHYROXINE SODIUM [Concomitant]
  8. LISINOPRIL [Concomitant]
  9. ADVAIR DISKUS 100/50 [Concomitant]
  10. VENTOLIN [Concomitant]
  11. MULTI-VITAMINS [Concomitant]

REACTIONS (7)
  - BLADDER CANCER [None]
  - BLOOD GLUCOSE DECREASED [None]
  - HAEMORRHAGE [None]
  - RENAL CELL CARCINOMA STAGE UNSPECIFIED [None]
  - RENAL IMPAIRMENT [None]
  - TRANSITIONAL CELL CARCINOMA [None]
  - URINARY BLADDER POLYP [None]
